FAERS Safety Report 8618176-9 (Version None)
Quarter: 2012Q3

REPORT INFORMATION
  Report Type: 
  Country: None (occurrence: None)
  Receive Date: 20120824
  Receipt Date: 20120810
  Transmission Date: 20120928
  Serious: Yes (Other)
  Sender: FDA-Public Use
  Company Number: US-MYLANLABS-2012S1016756

PATIENT
  Age: 55 Year
  Sex: Female

DRUGS (13)
  1. FENTANYL [Suspect]
     Dosage: 75 MICROG/H
     Route: 062
  2. MORPHINE [Suspect]
     Indication: BREAKTHROUGH PAIN
     Route: 042
  3. DULOXETINE HYDROCHLORIDE [Concomitant]
     Indication: CANCER PAIN
     Dosage: 20MG DAILY
     Route: 065
  4. PERCOCET [Suspect]
     Indication: BREAKTHROUGH PAIN
     Dosage: 10/325MG; UP TO 6 TABLETS/DAY
     Route: 065
  5. ROPIVACAINE HYDROCHLORIDE [Concomitant]
     Indication: CANCER PAIN
     Dosage: BOLUS OF 0.5%
     Route: 065
  6. METHADONE HYDROCHLORIDE [Suspect]
     Indication: CANCER PAIN
     Route: 048
  7. KETAMINE HCL [Concomitant]
     Indication: CANCER PAIN
     Route: 048
  8. MORPHINE [Suspect]
     Dosage: 40MG TOTAL DOSE ON DAY 2
     Route: 042
  9. FENTANYL [Suspect]
     Indication: CANCER PAIN
     Dosage: 50 MICROG/H
     Route: 062
  10. TACROLIMUS [Suspect]
     Indication: IMMUNOSUPPRESSANT DRUG THERAPY
     Route: 065
  11. MORPHINE [Suspect]
     Dosage: 40MG TOTAL DOSE ON DAY 2
     Route: 042
  12. MORPHINE [Suspect]
     Indication: CANCER PAIN
     Route: 042
  13. ROPIVACAINE HYDROCHLORIDE [Concomitant]
     Dosage: INFUSION OF 8 ML/HOUR OF 0.2%
     Route: 065

REACTIONS (3)
  - MENTAL STATUS CHANGES [None]
  - RENAL FAILURE CHRONIC [None]
  - DELIRIUM [None]
